FAERS Safety Report 14305460 (Version 1)
Quarter: 2017Q4

REPORT INFORMATION
  Report Type: Spontaneous
  Country: FR (occurrence: FR)
  Receive Date: 20171219
  Receipt Date: 20171219
  Transmission Date: 20180321
  Serious: Yes (Hospitalization, Other)
  Sender: FDA-Public Use
  Company Number: FR-OTSUKA-DJ20090809

PATIENT
  Age: 18 Year
  Sex: Female
  Weight: 51.3 kg

DRUGS (10)
  1. ABILIFY [Suspect]
     Active Substance: ARIPIPRAZOLE
     Dosage: 10 MG, UNK
     Route: 048
     Dates: start: 20090122
  2. DUPHALAC [Concomitant]
     Active Substance: LACTULOSE
     Indication: PRODUCT USED FOR UNKNOWN INDICATION
     Dosage: UNK
     Route: 065
  3. EFFEXOR [Interacting]
     Active Substance: VENLAFAXINE HYDROCHLORIDE
     Indication: DEPRESSION
     Dosage: UNK
     Route: 048
     Dates: start: 20081218, end: 20090122
  4. ABILIFY [Suspect]
     Active Substance: ARIPIPRAZOLE
     Indication: PSYCHOTIC DISORDER
     Dosage: 10 MG, UNK
     Route: 048
     Dates: start: 20090106, end: 20090121
  5. TERCIAN                            /00759301/ [Suspect]
     Active Substance: CYAMEMAZINE
     Indication: ORTHOSTATIC HYPOTENSION
  6. HEPTAMINOL                         /00315403/ [Concomitant]
     Dosage: 2 DF, UNK
     Route: 048
  7. ZOPICLONE [Concomitant]
     Active Substance: ZOPICLONE
     Indication: PRODUCT USED FOR UNKNOWN INDICATION
     Dosage: 1 DF = 1 TABLET
     Route: 048
  8. TERCIAN                            /00759301/ [Suspect]
     Active Substance: CYAMEMAZINE
     Indication: ANXIETY
     Dosage: UNK
     Route: 048
     Dates: start: 20090106, end: 20090122
  9. HEPTAMINOL                         /00315403/ [Concomitant]
     Indication: ORTHOSTATIC HYPOTENSION
     Dosage: 1 DF, UNK
     Route: 048
     Dates: start: 20090106
  10. IMOVANE [Concomitant]
     Active Substance: ZOPICLONE
     Indication: PRODUCT USED FOR UNKNOWN INDICATION
     Dosage: UNK
     Route: 065

REACTIONS (9)
  - Fatigue [Unknown]
  - Vomiting [Recovering/Resolving]
  - Hypoglycaemia [Unknown]
  - Malaise [Unknown]
  - Diarrhoea [Unknown]
  - Tremor [Unknown]
  - Orthostatic hypotension [Recovering/Resolving]
  - Drug interaction [Unknown]
  - Somnolence [Unknown]

NARRATIVE: CASE EVENT DATE: 20090122
